FAERS Safety Report 23207522 (Version 1)
Quarter: 2023Q4

REPORT INFORMATION
  Report Type: Report from Study
  Country: US (occurrence: US)
  Receive Date: 20231120
  Receipt Date: 20231120
  Transmission Date: 20240110
  Serious: Yes (Hospitalization, Other)
  Sender: FDA-Public Use
  Company Number: US-ABBVIE-5503554

PATIENT
  Sex: Female

DRUGS (5)
  1. SKYRIZI [Suspect]
     Active Substance: RISANKIZUMAB-RZAA
     Indication: Crohn^s disease
     Dosage: WEEK 12?STRENGTH: 180MG/1.2ML
     Route: 058
     Dates: start: 20230714, end: 20230913
  2. SKYRIZI [Suspect]
     Active Substance: RISANKIZUMAB-RZAA
     Dosage: STRENGTH: 180MG/1.2ML
     Route: 058
     Dates: start: 20231111
  3. SKYRIZI [Suspect]
     Active Substance: RISANKIZUMAB-RZAA
     Indication: Crohn^s disease
     Dosage: TIME INTERVAL: TOTAL: STRENGTH:600 MG?WEEK 0
     Route: 042
     Dates: start: 20230411, end: 20230411
  4. SKYRIZI [Suspect]
     Active Substance: RISANKIZUMAB-RZAA
     Indication: Crohn^s disease
     Dosage: TIME INTERVAL: TOTAL: STRENGTH:600 MG?WEEK 4
     Route: 042
     Dates: start: 20230515, end: 20230515
  5. SKYRIZI [Suspect]
     Active Substance: RISANKIZUMAB-RZAA
     Indication: Crohn^s disease
     Dosage: TIME INTERVAL: TOTAL: STRENGTH:600 MG?WEEK 8
     Route: 042
     Dates: start: 20230615, end: 20230615

REACTIONS (9)
  - Blood magnesium abnormal [Unknown]
  - Hospitalisation [Recovered/Resolved]
  - Fatigue [Unknown]
  - Catheterisation cardiac [Unknown]
  - Frequent bowel movements [Unknown]
  - Nausea [Unknown]
  - Hospitalisation [Recovered/Resolved]
  - Crohn^s disease [Unknown]
  - Asthenia [Unknown]

NARRATIVE: CASE EVENT DATE: 20230101
